FAERS Safety Report 7580728-5 (Version None)
Quarter: 2011Q2

REPORT INFORMATION
  Report Type: 
  Country: None (occurrence: None)
  Receive Date: 20110629
  Receipt Date: 20110622
  Transmission Date: 20111010
  Serious: Yes (Other)
  Sender: FDA-Public Use
  Company Number: US-ABBOTT-11P-163-0734520-00

PATIENT
  Sex: Female
  Weight: 77.18 kg

DRUGS (10)
  1. UNKNOWN MEDICATION [Concomitant]
     Indication: HORMONE LEVEL ABNORMAL
  2. FLAX SEED OIL [Concomitant]
     Indication: PRODUCT USED FOR UNKNOWN INDICATION
  3. NEXIUM [Concomitant]
     Indication: PRODUCT USED FOR UNKNOWN INDICATION
  4. NIASPAN [Suspect]
     Indication: BLOOD TRIGLYCERIDES INCREASED
     Dates: start: 20090101, end: 20090101
  5. NIASPAN [Suspect]
     Dates: start: 20090101, end: 20100101
  6. ASPIRIN [Concomitant]
     Indication: PRODUCT USED FOR UNKNOWN INDICATION
  7. VITAMIN TAB [Concomitant]
     Indication: PRODUCT USED FOR UNKNOWN INDICATION
  8. NIASPAN [Suspect]
     Dosage: TWICE DAILY AT BEDTIME
     Dates: start: 20100101
  9. RED YEAST RICE [Concomitant]
     Indication: PRODUCT USED FOR UNKNOWN INDICATION
  10. DIURETIC [Concomitant]
     Indication: PRODUCT USED FOR UNKNOWN INDICATION

REACTIONS (4)
  - INTERVERTEBRAL DISC PROTRUSION [None]
  - ERYTHEMA [None]
  - PRURITUS [None]
  - FLUSHING [None]
